FAERS Safety Report 4307988-8 (Version None)
Quarter: 2004Q1

REPORT INFORMATION
  Report Type: 
  Country: None (occurrence: None)
  Receive Date: 20040301
  Receipt Date: 20030224
  Transmission Date: 20041129
  Serious: No
  Sender: FDA-Public Use
  Company Number: US-BRISTOL-MYERS SQUIBB COMPANY-12193579

PATIENT
  Age: 59 Year
  Sex: Female
  Weight: 84 kg

DRUGS (7)
  1. GLUCOPHAGE [Suspect]
     Indication: DIABETES MELLITUS
     Route: 048
     Dates: start: 20020901
  2. GLUCOTROL [Concomitant]
  3. SYNTHROID [Concomitant]
  4. DONNATAL [Concomitant]
  5. PRILOSEC [Concomitant]
  6. ANTACID TAB [Concomitant]
  7. MS CONTIN [Concomitant]

REACTIONS (2)
  - DYSPEPSIA [None]
  - GASTROOESOPHAGEAL REFLUX DISEASE [None]
